FAERS Safety Report 7057967-5 (Version None)
Quarter: 2010Q4

REPORT INFORMATION
  Report Type: 
  Country: None (occurrence: None)
  Receive Date: 20101022
  Receipt Date: 20101018
  Transmission Date: 20110411
  Serious: Yes (Other)
  Sender: FDA-Public Use
  Company Number: US-PFIZER INC-2009219002

PATIENT
  Sex: Female
  Weight: 68.027 kg

DRUGS (5)
  1. XALATAN [Suspect]
     Indication: GLAUCOMA
     Dosage: 2 GTT, 1X/DAY
     Route: 047
     Dates: start: 20060801
  2. CRESTOR [Concomitant]
     Indication: BLOOD CHOLESTEROL INCREASED
     Dosage: 0.5 MG, 1X/DAY
     Route: 048
     Dates: start: 20061201
  3. CLONAZEPAM [Concomitant]
     Indication: RESTLESS LEGS SYNDROME
     Dosage: 1 MG, 1X/DAY
     Route: 048
     Dates: start: 20061201
  4. DIOVAN HCT [Concomitant]
     Indication: HYPERTENSION
     Dosage: 320 MG, 1X/DAY
     Route: 048
     Dates: start: 20061201
  5. HYDROCODONE [Concomitant]
     Dosage: UNK MG, AS NEEDED
     Route: 048

REACTIONS (1)
  - BREAST CANCER FEMALE [None]
